FAERS Safety Report 7459847-X (Version None)
Quarter: 2011Q2

REPORT INFORMATION
  Report Type: 
  Country: None (occurrence: None)
  Receive Date: 20110427
  Receipt Date: 20110414
  Transmission Date: 20111010
  Serious: Yes (Congenital Anomaly, Other)
  Sender: FDA-Public Use
  Company Number: GB-ACCORD-008800

PATIENT

DRUGS (4)
  1. BUDESONIDE [Concomitant]
  2. DIHYDROCODEINE BITARTRATE INJ [Concomitant]
  3. TOPIRAMATE [Suspect]
     Indication: DRUG EXPOSURE DURING PREGNANCY
     Dosage: 450.00-MG-TRANSPLACENTAL
     Route: 064
  4. FOLIC ACID [Concomitant]

REACTIONS (2)
  - MATERNAL DRUGS AFFECTING FOETUS [None]
  - POLYDACTYLY [None]
